FAERS Safety Report 5703801-2 (Version None)
Quarter: 2008Q2

REPORT INFORMATION
  Report Type: 
  Country: None (occurrence: None)
  Receive Date: 20080414
  Receipt Date: 20080403
  Transmission Date: 20081010
  Serious: Yes (Hospitalization)
  Sender: FDA-Public Use
  Company Number: CA-JNJFOC-20080101041

PATIENT
  Sex: Female
  Weight: 102.7 kg

DRUGS (9)
  1. REMICADE [Suspect]
     Route: 042
  2. REMICADE [Suspect]
     Indication: CROHN'S DISEASE
     Route: 042
  3. HYDROCORTISONE [Concomitant]
     Indication: PREMEDICATION
     Route: 042
  4. PREDNISONE [Concomitant]
  5. CELEXA [Concomitant]
     Dosage: DOSE: 1/2
  6. PALAFER [Concomitant]
     Dosage: DOSE:EVERY 2 DAYS
  7. M.V.I. [Concomitant]
  8. IMURAN [Concomitant]
  9. BELLADONNA-ERGOTAMINE-PHENOBARBITAL [Concomitant]

REACTIONS (2)
  - APPENDICECTOMY [None]
  - APPENDICITIS [None]
